FAERS Safety Report 8487350-7 (Version None)
Quarter: 2012Q2

REPORT INFORMATION
  Report Type: 
  Country: None (occurrence: None)
  Receive Date: 20120628
  Receipt Date: 20120628
  Transmission Date: 20120825
  Serious: Yes (Death)
  Sender: FDA-Public Use
  Company Number: None

PATIENT
  Age: 84 Year
  Sex: Female
  Weight: 106.1417 kg

DRUGS (2)
  1. ROMIPLOSTIN 250 MCG AMGEN [Suspect]
     Indication: THROMBOCYTOPENIA
     Dosage: 110 MCG ONCE, 110 MG ONCE A WEEK SUBCUTANEOUS INJECTION (057)
     Dates: start: 20120207
  2. ROMIPLOSTIN 500 MCG AMGEN [Suspect]
     Dosage: 320 MCG ONCE A WEEK SUBCUTANEOUS INJECTION  057
     Dates: start: 20120501

REACTIONS (9)
  - MYOCARDIAL ISCHAEMIA [None]
  - DYSPNOEA [None]
  - DIZZINESS [None]
  - OEDEMA PERIPHERAL [None]
  - ASTHENIA [None]
  - PULMONARY OEDEMA [None]
  - HEART RATE IRREGULAR [None]
  - ATRIAL FIBRILLATION [None]
  - OXYGEN SATURATION DECREASED [None]
